FAERS Safety Report 13331034 (Version 1)
Quarter: 2017Q1

REPORT INFORMATION
  Report Type: Spontaneous
  Country: US (occurrence: US)
  Receive Date: 20170313
  Receipt Date: 20170313
  Transmission Date: 20170428
  Serious: Yes (Other)
  Sender: FDA-Public Use
  Company Number: None

PATIENT
  Age: 35 Year
  Sex: Female
  Weight: 51.75 kg

DRUGS (1)
  1. SINGULAIR [Suspect]
     Active Substance: MONTELUKAST SODIUM
     Indication: ASTHMA

REACTIONS (6)
  - Paranoia [None]
  - Sleep disorder [None]
  - Palpitations [None]
  - Abnormal dreams [None]
  - Nightmare [None]
  - Anxiety [None]
